APPROVED DRUG PRODUCT: MIRABEGRON
Active Ingredient: MIRABEGRON
Strength: 25MG
Dosage Form/Route: TABLET, EXTENDED RELEASE;ORAL
Application: A209446 | Product #001
Applicant: SAWAI USA INC
Approved: Dec 27, 2019 | RLD: No | RS: No | Type: DISCN